FAERS Safety Report 6204294-1 (Version None)
Quarter: 2009Q2

REPORT INFORMATION
  Report Type: 
  Country: None (occurrence: None)
  Receive Date: 20090521
  Receipt Date: 20090513
  Transmission Date: 20091009
  Serious: Yes (Other)
  Sender: FDA-Public Use
  Company Number: 271286

PATIENT
  Age: 36 Year
  Sex: Female
  Weight: 62 kg

DRUGS (14)
  1. HYDROCORTISONE [Suspect]
     Indication: EVIDENCE BASED TREATMENT
     Dosage: 100 MG, INTRAVENOUS
     Route: 042
  2. NOREPINEPHRINE BITARTRATE [Suspect]
     Indication: VASOPRESSIVE THERAPY
     Dosage: INITIATED AT 4 UG/MIN AND ADJUSTED UPWARD TO 25 UG/MIN; INTRAVENOUS DRIP
     Route: 041
  3. PROPOFOL [Suspect]
     Indication: SEDATIVE THERAPY
     Dosage: 25 MCG/KG/MIN, INTRAVENOUS DRIP
     Route: 041
  4. (VASOPRESSIN) [Concomitant]
  5. VANCOMYCIN HCL [Concomitant]
  6. PIPERACILLIN SODIUM AND TAZOBACTAM SODIUM [Concomitant]
  7. MOXIFLOXACIN HCL [Concomitant]
  8. TRIMETHOPRIM + SULFAMETHOXAZOLE [Concomitant]
  9. (MICAFUNGIN SODIUM) [Concomitant]
  10. MIDAZOLAM HCL [Concomitant]
  11. METHADONE HCL [Concomitant]
  12. FENTANYL [Concomitant]
  13. CEFTRIAXONE [Concomitant]
  14. PHENOBARBITAL TAB [Concomitant]

REACTIONS (5)
  - BLOOD AMYLASE INCREASED [None]
  - CHROMATURIA [None]
  - LIPASE INCREASED [None]
  - PROPOFOL INFUSION SYNDROME [None]
  - RASH MORBILLIFORM [None]
